FAERS Safety Report 16758227 (Version 1)
Quarter: 2019Q3

REPORT INFORMATION
  Report Type: Spontaneous
  Country: FR (occurrence: FR)
  Receive Date: 20190830
  Receipt Date: 20190830
  Transmission Date: 20191005
  Serious: Yes (Hospitalization)
  Sender: FDA-Public Use
  Company Number: FR-ZYDUS-040104

PATIENT
  Age: 76 Year
  Sex: Male
  Weight: 75 kg

DRUGS (10)
  1. FLUVASTATIN [Concomitant]
     Active Substance: FLUVASTATIN SODIUM
  2. CLODRONIC ACID [Concomitant]
     Active Substance: CLODRONIC ACID
  3. ACETYLSALICYLATE LYSINE/ACETYLSALICYLIC ACID [Concomitant]
  4. BISOPROLOL/BISOPROLOL FUMARATE/BISOPROLOL HEMIFUMARATE [Concomitant]
  5. VALACICLOVIR/VALACICLOVIR HYDROCHLORIDE [Concomitant]
  6. SERENOA REPENS [Concomitant]
     Active Substance: SERENOA REPENS WHOLE
  7. HYDROCHLOROTHIAZIDE. [Suspect]
     Active Substance: HYDROCHLOROTHIAZIDE
     Indication: HYPERTENSION
     Route: 048
  8. LEVOTHYROXINE. [Concomitant]
     Active Substance: LEVOTHYROXINE
  9. LENALIDOMIDE [Suspect]
     Active Substance: LENALIDOMIDE
     Indication: PLASMA CELL MYELOMA
     Dosage: ()
     Route: 048
     Dates: start: 201903, end: 20190520
  10. CANDESARTAN CILEXETIL. [Suspect]
     Active Substance: CANDESARTAN CILEXETIL
     Indication: HYPERTENSION
     Route: 048

REACTIONS (3)
  - Pancytopenia [Not Recovered/Not Resolved]
  - Hyperkalaemia [Not Recovered/Not Resolved]
  - Acute kidney injury [Not Recovered/Not Resolved]

NARRATIVE: CASE EVENT DATE: 201904
